FAERS Safety Report 13912002 (Version 1)
Quarter: 2017Q3

REPORT INFORMATION
  Report Type: Spontaneous
  Country: US (occurrence: US)
  Receive Date: 20170828
  Receipt Date: 20170828
  Transmission Date: 20171127
  Serious: Yes (Hospitalization)
  Sender: FDA-Public Use
  Company Number: US-JNJFOC-20170709172

PATIENT
  Age: 49 Year
  Sex: Male

DRUGS (2)
  1. XARELTO [Suspect]
     Active Substance: RIVAROXABAN
     Indication: DEEP VEIN THROMBOSIS
     Dosage: VARYING DOSES OF 15MG TWICE A DAY AND 20 MG ONCE A DAY IN THE EVENING.
     Route: 048
     Dates: start: 20151218, end: 20151223
  2. XARELTO [Suspect]
     Active Substance: RIVAROXABAN
     Indication: DEEP VEIN THROMBOSIS
     Route: 048

REACTIONS (3)
  - Peritoneal haemorrhage [Recovering/Resolving]
  - Road traffic accident [Unknown]
  - Splenic rupture [Recovering/Resolving]

NARRATIVE: CASE EVENT DATE: 201512
